FAERS Safety Report 4740822-0 (Version None)
Quarter: 2005Q3

REPORT INFORMATION
  Report Type: 
  Country: None (occurrence: None)
  Receive Date: 20050810
  Receipt Date: 20040909
  Transmission Date: 20060218
  Serious: No
  Sender: FDA-Public Use
  Company Number: US-GLAXOSMITHKLINE-A0525130A

PATIENT
  Age: 59 Year
  Sex: Female

DRUGS (1)
  1. TAGAMET HB 200 [Suspect]
     Indication: ANTACID THERAPY

REACTIONS (2)
  - DYSPHAGIA [None]
  - INTENTIONAL MISUSE [None]
